FAERS Safety Report 17860885 (Version 1)
Quarter: 2020Q2

REPORT INFORMATION
  Report Type: Spontaneous
  Country: CA (occurrence: CA)
  Receive Date: 20200604
  Receipt Date: 20200604
  Transmission Date: 20200714
  Serious: Yes (Other)
  Sender: FDA-Public Use
  Company Number: CA-TEVA-2020-CA-1243423

PATIENT
  Age: 82 Year
  Sex: Female

DRUGS (14)
  1. METHOTREXATE. [Suspect]
     Active Substance: METHOTREXATE
     Route: 065
  2. AMLODIPINE [Concomitant]
     Active Substance: AMLODIPINE BESYLATE
  3. CODEINE [Concomitant]
     Active Substance: CODEINE
  4. FOLIC ACID. [Concomitant]
     Active Substance: FOLIC ACID
  5. VITAMIN D [Concomitant]
     Active Substance: VITAMIN D NOS
  6. PREDNISONE. [Concomitant]
     Active Substance: PREDNISONE
  7. HYDROXYCHLOROQUINE SULFATE. [Concomitant]
     Active Substance: HYDROXYCHLOROQUINE SULFATE
  8. MORPHINE SULFATE. [Concomitant]
     Active Substance: MORPHINE SULFATE
  9. OXYCODONE [Concomitant]
     Active Substance: OXYCODONE
  10. METHOTREXATE. [Suspect]
     Active Substance: METHOTREXATE
     Indication: PRODUCT USED FOR UNKNOWN INDICATION
     Route: 065
  11. METHOTREXATE. [Suspect]
     Active Substance: METHOTREXATE
     Indication: PRODUCT USED FOR UNKNOWN INDICATION
     Route: 065
  12. SYNTHROID [Concomitant]
     Active Substance: LEVOTHYROXINE SODIUM
  13. CALCIUM [Concomitant]
     Active Substance: CALCIUM
  14. SUPEUDOL [Concomitant]
     Active Substance: OXYCODONE HYDROCHLORIDE

REACTIONS (11)
  - Vomiting [Unknown]
  - Pain [Unknown]
  - Pneumonia [Unknown]
  - Loss of consciousness [Unknown]
  - Nausea [Unknown]
  - Neck pain [Unknown]
  - Drug ineffective [Unknown]
  - Drug intolerance [Unknown]
  - Pain in extremity [Unknown]
  - Peripheral swelling [Unknown]
  - Abdominal pain upper [Unknown]
